FAERS Safety Report 7875696-2 (Version None)
Quarter: 2011Q4

REPORT INFORMATION
  Report Type: 
  Country: None (occurrence: None)
  Receive Date: 20111031
  Receipt Date: 20100701
  Transmission Date: 20120403
  Serious: No
  Sender: FDA-Public Use
  Company Number: US-BAYER-201027611NA

PATIENT
  Age: 80 Year
  Sex: Male

DRUGS (6)
  1. DILTIAZEM HCL [Concomitant]
  2. LEVITRA [Suspect]
     Indication: ERECTILE DYSFUNCTION
     Dosage: 10 MG, UNK
     Route: 048
     Dates: start: 20100203
  3. LEVITRA [Suspect]
     Dosage: 20 MG, UNK
  4. COUMADIN [Concomitant]
  5. VIAGRA [Concomitant]
     Indication: ERECTILE DYSFUNCTION
  6. LISINOPRIL [Concomitant]

REACTIONS (1)
  - ERECTILE DYSFUNCTION [None]
